FAERS Safety Report 4742634-0 (Version None)
Quarter: 2005Q3

REPORT INFORMATION
  Report Type: 
  Country: None (occurrence: None)
  Receive Date: 20050801
  Receipt Date: 20050225
  Transmission Date: 20060218
  Serious: Yes (Death)
  Sender: FDA-Public Use
  Company Number: 212739

PATIENT
  Age: 34 Year
  Sex: Male

DRUGS (5)
  1. RITUXAN [Suspect]
     Indication: DIFFUSE LARGE B-CELL LYMPHOMA
     Dosage: 375 MG/M2, Q3W, INTRAVENOUS
     Route: 042
     Dates: start: 20030610, end: 20030826
  2. CYCLOPHOSPHAMIDE [Suspect]
     Indication: DIFFUSE LARGE B-CELL LYMPHOMA
     Dosage: Q3W, INTRAVENOUS
     Route: 042
     Dates: start: 20030610, end: 20030826
  3. DOXORUBICIN HYDROCHLORIDE [Suspect]
     Indication: DIFFUSE LARGE B-CELL LYMPHOMA
     Dosage: Q3W, INTRAVENOUS
     Route: 042
     Dates: start: 20030610, end: 20030826
  4. VINCRISTINE [Suspect]
     Indication: DIFFUSE LARGE B-CELL LYMPHOMA
     Dosage: Q3W, INTRAVENOUS
     Route: 042
     Dates: start: 20030610, end: 20030826
  5. PREDNISONE [Suspect]
     Indication: DIFFUSE LARGE B-CELL LYMPHOMA
     Dosage: QDX5D/21DC, UNK
     Route: 065
     Dates: start: 20030610

REACTIONS (1)
  - HEPATITIS B [None]
